FAERS Safety Report 6043014-0 (Version None)
Quarter: 2009Q1

REPORT INFORMATION
  Report Type: 
  Country: None (occurrence: None)
  Receive Date: 20090119
  Receipt Date: 20090109
  Transmission Date: 20090719
  Serious: No
  Sender: FDA-Public Use
  Company Number: FR-EISAI MEDIAL RESEARCH-E7273-00007-SPO-FR

PATIENT
  Sex: Male

DRUGS (4)
  1. TARGRETIN [Suspect]
     Indication: T-CELL LYMPHOMA
     Dosage: UNKNOWN
     Route: 048
  2. CRESTOR [Concomitant]
     Indication: HYPERCHOLESTEROLAEMIA
  3. CRESTOR [Concomitant]
  4. LIPANTHYL 160 [Concomitant]
     Indication: HYPERLIPIDAEMIA
     Route: 048

REACTIONS (3)
  - HYPERCHOLESTEROLAEMIA [None]
  - HYPERTHYROIDISM [None]
  - HYPERTRIGLYCERIDAEMIA [None]
